FAERS Safety Report 11894772 (Version 3)
Quarter: 2020Q3

REPORT INFORMATION
  Report Type: Report from Study
  Country: JP (occurrence: JP)
  Receive Date: 20160107
  Receipt Date: 20160321
  Transmission Date: 20201104
  Serious: Yes (Hospitalization)
  Sender: FDA-Public Use
  Company Number: JP-ROCHE-1507966

PATIENT
  Age: 77 Year
  Sex: Female
  Weight: 42 kg

DRUGS (8)
  1. ALECTINIB. [Suspect]
     Active Substance: ALECTINIB
     Indication: LUNG ADENOCARCINOMA
     Route: 048
     Dates: start: 20141212
  2. MAGNESIUM OXIDE. [Suspect]
     Active Substance: MAGNESIUM OXIDE
     Indication: LUNG ADENOCARCINOMA
     Dosage: THE FRACTIONATION DOSE FREQUENCY IS UNCERTAIN.
     Route: 048
     Dates: start: 20141018
  3. ADONA (JAPAN) [Concomitant]
     Dosage: THE FRACTIONATION DOSE FREQUENCY IS UNCERTAIN. ?DOSAGE DURING A DAY: 90 (UNIT UNCERTAINTY)
     Route: 048
     Dates: start: 20141125
  4. TRANSAMIN [Concomitant]
     Active Substance: TRANEXAMIC ACID
     Dosage: THE FRACTIONATION DOSE FREQUENCY IS UNCERTAIN. ?DOSAGE DURING A DAY: 750 (UNIT UNCERTAINTY)
     Route: 048
     Dates: start: 20141125
  5. PURSENNID [Concomitant]
     Dosage: FOR TON?DOSAGE DURING A DAY: 24 (UNIT UNCERTAINTY)
     Route: 048
     Dates: start: 20141125
  6. NEXIUM [Concomitant]
     Active Substance: ESOMEPRAZOLE MAGNESIUM
     Dosage: THE FRACTIONATION DOSE FREQUENCY IS UNCERTAIN. ?DOSAGE DURING A DAY: 20 (UNIT UNCERTAINTY)
     Route: 048
     Dates: start: 20141018
  7. ALECTINIB. [Suspect]
     Active Substance: ALECTINIB
     Indication: LUNG ADENOCARCINOMA
     Route: 048
     Dates: start: 20141112, end: 20141204
  8. ASPARA POTASSIUM [Concomitant]
     Active Substance: POTASSIUM ASPARTATE
     Dosage: THE FRACTIONATION DOSE FREQUENCY IS UNCERTAIN. ?DOSAGE DURING A DAY: 900 (UNIT UNCERTAINTY)
     Route: 048
     Dates: start: 20141018

REACTIONS (1)
  - Ileus [Recovered/Resolved]

NARRATIVE: CASE EVENT DATE: 20141204
